FAERS Safety Report 7377265-X (Version None)
Quarter: 2011Q1

REPORT INFORMATION
  Report Type: 
  Country: None (occurrence: None)
  Receive Date: 20110328
  Receipt Date: 20090930
  Transmission Date: 20110831
  Serious: Yes (Other)
  Sender: FDA-Public Use
  Company Number: US-BAYER-201042008NA

PATIENT
  Sex: Male
  Weight: 63 kg

DRUGS (8)
  1. TRASYLOL [Suspect]
     Indication: CORONARY ARTERY BYPASS
     Dosage: UNK
     Dates: start: 20060101
  2. DIOVAN [Concomitant]
     Dosage: 80 MG, QD
     Dates: start: 20030701
  3. PROCRIT [Concomitant]
     Dosage: 20000 U, UNK
     Route: 058
     Dates: start: 20030701
  4. LANTUS [Concomitant]
     Dosage: 12 U, QD
     Dates: start: 20030701
  5. PHOSLO [Concomitant]
     Dosage: 2, 3 TIMES DAILY
     Dates: start: 20030701
  6. REGLAN [Concomitant]
     Dosage: 5 MG, TID
     Dates: start: 20030701
  7. SYNTHROID [Concomitant]
     Dosage: 50 MCG/24HR, QD
     Dates: start: 20030701
  8. DEPAKOTE [Concomitant]
     Dosage: 250 MG, TID
     Dates: start: 20030701

REACTIONS (14)
  - UNEVALUABLE EVENT [None]
  - RENAL FAILURE [None]
  - PAIN [None]
  - NERVOUSNESS [None]
  - DISABILITY [None]
  - EMOTIONAL DISTRESS [None]
  - RENAL INJURY [None]
  - ANXIETY [None]
  - ANHEDONIA [None]
  - FEAR OF DEATH [None]
  - INJURY [None]
  - MULTI-ORGAN FAILURE [None]
  - DEPRESSION [None]
  - FEAR [None]
